FAERS Safety Report 20511235 (Version 2)
Quarter: 2022Q1

REPORT INFORMATION
  Report Type: Spontaneous
  Country: FR (occurrence: FR)
  Receive Date: 20220224
  Receipt Date: 20220315
  Transmission Date: 20220423
  Serious: No
  Sender: FDA-Public Use
  Company Number: FR-BIOVITRUM-2022FR00439

PATIENT
  Age: 41 Year
  Sex: Female

DRUGS (4)
  1. KINERET [Suspect]
     Active Substance: ANAKINRA
     Indication: Microvillous inclusion disease
     Route: 065
  2. KINERET [Suspect]
     Active Substance: ANAKINRA
     Indication: Pregnancy
  3. COLCHICINE [Concomitant]
     Active Substance: COLCHICINE
  4. LOW DOSE ASPIRIN [Concomitant]
     Active Substance: ASPIRIN

REACTIONS (2)
  - Maternal exposure during pregnancy [Recovered/Resolved]
  - Off label use [Unknown]
